FAERS Safety Report 5317468-9 (Version None)
Quarter: 2007Q2

REPORT INFORMATION
  Report Type: 
  Country: None (occurrence: None)
  Receive Date: 20070507
  Receipt Date: 20070424
  Transmission Date: 20071010
  Serious: Yes (Other)
  Sender: FDA-Public Use
  Company Number: PHNU2006DE03724

PATIENT
  Sex: Male

DRUGS (3)
  1. DIOVAN [Suspect]
     Indication: HYPERTENSION
     Dosage: 1 DF, QD
  2. ACETYLSALICYLIC ACID SRT [Concomitant]
  3. HERBAL PREPARATION [Concomitant]

REACTIONS (1)
  - HALLUCINATION, VISUAL [None]
